FAERS Safety Report 7059754-0 (Version None)
Quarter: 2010Q4

REPORT INFORMATION
  Report Type: 
  Country: None (occurrence: None)
  Receive Date: 20101025
  Receipt Date: 20101013
  Transmission Date: 20110411
  Serious: Yes (Other)
  Sender: FDA-Public Use
  Company Number: US-PFIZER INC-2010130928

PATIENT
  Sex: Female
  Weight: 88.435 kg

DRUGS (10)
  1. GEODON [Suspect]
     Indication: DEPRESSION
     Dosage: 80 MG, 2X/DAY
     Route: 048
     Dates: start: 20100101
  2. GEODON [Suspect]
     Indication: ANXIETY
  3. GLIPIZIDE [Suspect]
     Indication: DIABETES MELLITUS
     Dosage: 10 MG, 2X/DAY
     Route: 048
     Dates: end: 20101001
  4. BEXTRA [Suspect]
     Indication: URINARY TRACT INFECTION
     Dosage: UNK
     Route: 048
     Dates: start: 20100101
  5. ELAVIL [Concomitant]
     Indication: DEPRESSION
     Dosage: UNK
     Route: 048
     Dates: start: 20100101
  6. VALIUM [Concomitant]
     Indication: ANXIETY
     Dosage: 5 MG, 2X/DAY
     Route: 048
     Dates: start: 20100101
  7. AMBIEN [Concomitant]
     Indication: SLEEP DISORDER
     Dosage: 10 MG, 1X/DAY
     Route: 048
  8. HUMULIN R [Concomitant]
     Indication: DIABETES MELLITUS
     Dosage: 40 MG, 1X/DAY
     Dates: start: 20100101
  9. LANTUS [Concomitant]
     Indication: DIABETES MELLITUS
     Dosage: 30 MG, 1X/DAY
     Dates: start: 20100101
  10. METFORMIN [Concomitant]
     Indication: DIABETES MELLITUS
     Dosage: 500 MG, 3X/DAY

REACTIONS (9)
  - BLADDER DISORDER [None]
  - COUGH [None]
  - DRUG HYPERSENSITIVITY [None]
  - DYSPHONIA [None]
  - DYSSTASIA [None]
  - HYPERTENSION [None]
  - PAIN [None]
  - PANIC ATTACK [None]
  - PHARYNGEAL DISORDER [None]
